FAERS Safety Report 19113532 (Version 1)
Quarter: 2021Q2

REPORT INFORMATION
  Report Type: Spontaneous
  Country: US (occurrence: US)
  Receive Date: 20210409
  Receipt Date: 20210409
  Transmission Date: 20210717
  Serious: No
  Sender: FDA-Public Use
  Company Number: US-ALLERGAN-2015391US

PATIENT
  Sex: Female
  Weight: 49.89 kg

DRUGS (2)
  1. PRENATAL VITAMINS                  /02014401/ [Concomitant]
     Active Substance: VITAMINS
     Dosage: UNK
     Route: 048
     Dates: start: 2017
  2. LILETTA [Suspect]
     Active Substance: LEVONORGESTREL
     Indication: CONTRACEPTION
     Dosage: 52 MG, SINGLE
     Route: 015
     Dates: start: 20170103, end: 20170716

REACTIONS (3)
  - Infertility female [Unknown]
  - Endometrial atrophy [Unknown]
  - Uterine spasm [Recovered/Resolved]

NARRATIVE: CASE EVENT DATE: 2017
